FAERS Safety Report 9670003 (Version 1)
Quarter: 2013Q4

REPORT INFORMATION
  Report Type: Spontaneous
  Country: US (occurrence: None)
  Receive Date: 20131104
  Receipt Date: 20131104
  Transmission Date: 20140711
  Serious: Yes (Hospitalization)
  Sender: FDA-Public Use
  Company Number: DEP_01253_2013

PATIENT
  Age: 73 Year
  Sex: Female
  Weight: 63.5 kg

DRUGS (6)
  1. GRALISE [Suspect]
     Indication: BACK PAIN
     Route: 048
     Dates: start: 201309
  2. GRALISE [Suspect]
     Indication: OFF LABEL USE
     Route: 048
     Dates: start: 201309
  3. PERCOCET [Suspect]
     Indication: PRODUCT USED FOR UNKNOWN INDICATION
  4. CARDIZEM [Concomitant]
  5. KEFLEX [Concomitant]
  6. SINEMET [Concomitant]

REACTIONS (2)
  - Loss of consciousness [None]
  - Fall [None]
